FAERS Safety Report 21933475 (Version 3)
Quarter: 2023Q1

REPORT INFORMATION
  Report Type: Report from Study
  Country: MA (occurrence: None)
  Receive Date: 20230201
  Receipt Date: 20230321
  Transmission Date: 20230418
  Serious: Yes (Hospitalization, Other)
  Sender: FDA-Public Use
  Company Number: MA-Merck Healthcare KGaA-9380103

PATIENT
  Age: 58 Year
  Sex: Male

DRUGS (1)
  1. REBIF [Suspect]
     Active Substance: INTERFERON BETA-1A
     Indication: Multiple sclerosis
     Dates: start: 20090901

REACTIONS (2)
  - Gastrointestinal disorder [Unknown]
  - Coronary vein stenosis [Unknown]
